FAERS Safety Report 4903405-5 (Version None)
Quarter: 2006Q1

REPORT INFORMATION
  Report Type: 
  Country: None (occurrence: None)
  Receive Date: 20060203
  Receipt Date: 20060201
  Transmission Date: 20060701
  Serious: Yes (Hospitalization)
  Sender: FDA-Public Use
  Company Number: TCI2006A00401

PATIENT
  Age: 45 Year
  Sex: Female

DRUGS (1)
  1. LEUPROLIDE ACETATE [Suspect]
     Indication: ENDOMETRIOSIS
     Dosage: 1.88 MG (1.88 MG, 1 IN 28 D) SUBCUTANEOUS
     Route: 058
     Dates: start: 20050331, end: 20050331

REACTIONS (4)
  - ACUTE ABDOMEN [None]
  - GENITAL HAEMORRHAGE [None]
  - INTESTINAL PERFORATION [None]
  - PERITONITIS [None]
